FAERS Safety Report 9325581 (Version 1)
Quarter: 2013Q2

REPORT INFORMATION
  Report Type: Report from Study
  Country: US (occurrence: US)
  Receive Date: 20130604
  Receipt Date: 20130604
  Transmission Date: 20140414
  Serious: Yes (Other)
  Sender: FDA-Public Use
  Company Number: PHEH2013US011969

PATIENT
  Sex: Male

DRUGS (1)
  1. MYFORTIC [Suspect]
     Dosage: 4 DF, BID
     Route: 048

REACTIONS (14)
  - Carpal tunnel syndrome [Unknown]
  - Renal disorder [Unknown]
  - Cardiac disorder [Unknown]
  - Diabetes mellitus [Unknown]
  - Neuropathy peripheral [Unknown]
  - Sleep apnoea syndrome [Unknown]
  - Joint injury [Unknown]
  - Asthma [Unknown]
  - Arthritis [Unknown]
  - Gout [Unknown]
  - Bone disorder [Unknown]
  - Depression [Unknown]
  - Hypertension [Unknown]
  - Herpes zoster [Unknown]
